FAERS Safety Report 15266260 (Version 2)
Quarter: 2018Q3

REPORT INFORMATION
  Report Type: Spontaneous
  Country: US (occurrence: US)
  Receive Date: 20180810
  Receipt Date: 20180911
  Transmission Date: 20181010
  Serious: No
  Sender: FDA-Public Use
  Company Number: US-ASTRAZENECA-2018SE91113

PATIENT
  Age: 817 Month
  Sex: Female
  Weight: 64 kg

DRUGS (2)
  1. LEVOTHYROXINE. [Concomitant]
     Active Substance: LEVOTHYROXINE
     Indication: WEIGHT DECREASED
     Dosage: 100.0UG UNKNOWN
     Route: 048
  2. SYMBICORT [Suspect]
     Active Substance: BUDESONIDE\FORMOTEROL FUMARATE DIHYDRATE
     Indication: EMPHYSEMA
     Dosage: 2 PUFFS,TWO TIMES A DAY 80/4.5
     Route: 055
     Dates: start: 201706

REACTIONS (6)
  - Energy increased [Unknown]
  - Wrong technique in product usage process [Unknown]
  - Intentional product misuse [Not Recovered/Not Resolved]
  - Product use in unapproved indication [Unknown]
  - Device malfunction [Unknown]
  - Off label use [Unknown]

NARRATIVE: CASE EVENT DATE: 201706
